FAERS Safety Report 10931126 (Version 1)
Quarter: 2015Q1

REPORT INFORMATION
  Report Type: Report from Study
  Country: US (occurrence: US)
  Receive Date: 20150319
  Receipt Date: 20150319
  Transmission Date: 20150721
  Serious: Yes (Other)
  Sender: FDA-Public Use
  Company Number: US-PFIZER INC-2015094030

PATIENT
  Age: 53 Year
  Sex: Female
  Weight: 73 kg

DRUGS (26)
  1. LUPRON [Suspect]
     Active Substance: LEUPROLIDE ACETATE
     Indication: HAEMORRHAGE
  2. TYLENOL [Concomitant]
     Active Substance: ACETAMINOPHEN
     Dosage: 500 MG, UNK
  3. AZOPT [Concomitant]
     Active Substance: BRINZOLAMIDE
     Dosage: 1 DF, 3X/DAY
  4. ETODOLAC. [Concomitant]
     Active Substance: ETODOLAC
     Indication: FOOT DEFORMITY
     Dosage: 600 MG, 1X/DAY
  5. HYZAAR [Concomitant]
     Active Substance: HYDROCHLOROTHIAZIDE\LOSARTAN POTASSIUM
     Dosage: 1 DF, 1X/DAY
  6. CALMS FORTE [Concomitant]
     Indication: SLEEP DISORDER
     Dosage: 1 DF, AS NEEDED
  7. FLECTOR [Concomitant]
     Active Substance: DICLOFENAC EPOLAMINE
     Indication: PAIN IN EXTREMITY
     Dosage: UNK
     Route: 061
  8. ONE-A-DAY [Concomitant]
     Dosage: 1 DF, 1X/DAY
     Route: 048
  9. BABY ASPIRIN [Concomitant]
     Active Substance: ASPIRIN
     Dosage: 81 MG, 1X/DAY
     Route: 048
  10. REFRESH PLUS [Concomitant]
     Active Substance: CARBOXYMETHYLCELLULOSE SODIUM
     Dosage: 1 DF, 1X/DAY
     Route: 048
  11. ZOLOFT [Suspect]
     Active Substance: SERTRALINE HYDROCHLORIDE
     Indication: EMOTIONAL DISORDER
     Dosage: 50 MG, 1X/DAY
  12. LUPRON [Suspect]
     Active Substance: LEUPROLIDE ACETATE
     Indication: UTERINE LEIOMYOMA
     Dosage: 3.75 MG, 1X/DAY
     Dates: start: 20131020, end: 201312
  13. VITAMIN D3 [Concomitant]
     Active Substance: CHOLECALCIFEROL
     Dosage: 1000 MG, 1X/DAY
     Route: 048
  14. CHONDROITIN [Concomitant]
     Active Substance: CHONDROITIN
     Dosage: 200 MG, 1X/DAY
     Route: 048
  15. OMEGA 3 [Concomitant]
     Active Substance: OMEGA-3 FATTY ACIDS
     Dosage: 1200 MG, 1X/DAY
     Route: 048
  16. GLUCOSAMINE [Concomitant]
     Active Substance: GLUCOSAMINE
     Dosage: 1500 MG, 1X/DAY
     Route: 048
  17. THERATEARS [Concomitant]
     Active Substance: CARBOXYMETHYLCELLULOSE SODIUM
     Dosage: 1 DF, 1X/DAY
  18. NORETHINDRONE ACETATE. [Concomitant]
     Active Substance: NORETHINDRONE ACETATE
     Indication: UTERINE LEIOMYOMA
     Dosage: 0.5 DF, 2X/DAY
     Dates: start: 20131030
  19. NORETHINDRONE ACETATE. [Concomitant]
     Active Substance: NORETHINDRONE ACETATE
     Indication: HAEMORRHAGE
  20. ZLOPTAN [Concomitant]
     Dosage: 1 DF, 1X/DAY
  21. PROTOPIC [Concomitant]
     Active Substance: TACROLIMUS
     Indication: ECZEMA
     Dosage: 1 DF, AS NEEDED
  22. FLAXSEED [Concomitant]
     Active Substance: FLAX SEED
     Dosage: 1000 MG, 1X/DAY
     Route: 048
  23. HYDROCORTISONE BUTYRATE. [Concomitant]
     Active Substance: HYDROCORTISONE BUTYRATE
     Indication: ECZEMA
     Dosage: UNK
     Route: 061
  24. BIOTIN [Concomitant]
     Active Substance: BIOTIN
     Dosage: 2500 ?G, 1X/DAY
     Route: 048
  25. ZOLOFT [Suspect]
     Active Substance: SERTRALINE HYDROCHLORIDE
     Dosage: 50 MG, 2X/DAY
  26. GENTEAL MILD [Concomitant]
     Active Substance: HYPROMELLOSE 2910 (4000 MPA.S)
     Dosage: 1 DF, 2X/DAY

REACTIONS (13)
  - Pruritus [Recovered/Resolved]
  - Vulval disorder [Unknown]
  - Vulvovaginal pruritus [Unknown]
  - Middle insomnia [Recovered/Resolved]
  - Diarrhoea [Recovered/Resolved]
  - Serum ferritin decreased [Unknown]
  - Dermal cyst [Unknown]
  - Crying [Recovered/Resolved]
  - Anger [Recovered/Resolved]
  - Hysterosalpingo-oophorectomy [Recovered/Resolved]
  - Nightmare [Unknown]
  - Staphylococcal infection [Recovered/Resolved]
  - Affect lability [Recovered/Resolved]

NARRATIVE: CASE EVENT DATE: 20131031
